FAERS Safety Report 6054391-9 (Version None)
Quarter: 2009Q1

REPORT INFORMATION
  Report Type: 
  Country: None (occurrence: None)
  Receive Date: 20090127
  Receipt Date: 20090116
  Transmission Date: 20090719
  Serious: Yes (Death)
  Sender: FDA-Public Use
  Company Number: US-B.I. PHARMACEUTICALS,INC./RIDGEFIELD-2009-DE-00401DE

PATIENT
  Age: 50 Year
  Sex: Male

DRUGS (10)
  1. MELOXICAM [Suspect]
     Route: 048
  2. NAPROXEN [Suspect]
     Route: 048
  3. IBUPROFEN [Suspect]
     Route: 048
  4. CLOPIDOGREL [Suspect]
     Route: 048
  5. METOPROLOL TARTRATE [Suspect]
     Route: 048
  6. FAXOFENADINE HCL [Suspect]
     Route: 048
  7. ALLOPURINOL [Suspect]
     Route: 048
  8. LISINOPRIL [Suspect]
     Route: 048
  9. PSEUDOEPHEDRINE HCL [Suspect]
     Route: 048
  10. ATORVASTATIN CALCIUM [Suspect]
     Route: 048

REACTIONS (1)
  - COMPLETED SUICIDE [None]
